FAERS Safety Report 20160612 (Version 9)
Quarter: 2022Q3

REPORT INFORMATION
  Report Type: Report from Study
  Country: AR (occurrence: AR)
  Receive Date: 20211208
  Receipt Date: 20220701
  Transmission Date: 20221027
  Serious: Yes (Hospitalization, Other)
  Sender: FDA-Public Use
  Company Number: AR-AMGEN-ARGSL2021178128

PATIENT
  Age: 29 Year
  Sex: Female

DRUGS (3)
  1. NPLATE [Suspect]
     Active Substance: ROMIPLOSTIM
     Indication: Immune thrombocytopenia
     Dosage: UNK UNK, QWK
     Route: 065
     Dates: start: 20211110
  2. NPLATE [Suspect]
     Active Substance: ROMIPLOSTIM
     Dosage: UNK, 2 TIMES/WK
     Route: 065
  3. NPLATE [Suspect]
     Active Substance: ROMIPLOSTIM
     Dosage: UNK UNK, QWK
     Route: 065

REACTIONS (11)
  - Haemorrhage [Unknown]
  - Platelet count decreased [Unknown]
  - Contusion [Unknown]
  - Arthralgia [Unknown]
  - Dizziness [Unknown]
  - Epistaxis [Unknown]
  - Gingival bleeding [Unknown]
  - Off label use [Unknown]
  - Joint stiffness [Unknown]
  - Hypoaesthesia [Not Recovered/Not Resolved]
  - Influenza [Unknown]

NARRATIVE: CASE EVENT DATE: 20211110
